FAERS Safety Report 14947293 (Version 2)
Quarter: 2020Q3

REPORT INFORMATION
  Report Type: Spontaneous
  Country: US (occurrence: US)
  Receive Date: 20180529
  Receipt Date: 20200714
  Transmission Date: 20201102
  Serious: Yes (Hospitalization)
  Sender: FDA-Public Use
  Company Number: US-PFIZER INC-2018213128

PATIENT
  Age: 37 Year
  Sex: Male
  Weight: 77.11 kg

DRUGS (2)
  1. BOSULIF [Suspect]
     Active Substance: BOSUTINIB MONOHYDRATE
     Indication: CHRONIC MYELOID LEUKAEMIA
     Dosage: 200 MG
     Route: 048
     Dates: start: 20180504
  2. BOSULIF [Suspect]
     Active Substance: BOSUTINIB MONOHYDRATE
     Dosage: 400 MG (FOUR TABLETS), ONCE A DAY
     Route: 048

REACTIONS (3)
  - White blood cell count abnormal [Unknown]
  - Myasthenia gravis [Unknown]
  - Eye swelling [Unknown]
